FAERS Safety Report 7550955-1 (Version None)
Quarter: 2011Q2

REPORT INFORMATION
  Report Type: 
  Country: None (occurrence: None)
  Receive Date: 20110609
  Receipt Date: 20110526
  Transmission Date: 20111010
  Serious: Yes (Hospitalization, Other)
  Sender: FDA-Public Use
  Company Number: JPI-P-015227

PATIENT
  Age: 29 Year
  Sex: Female
  Weight: 83.9154 kg

DRUGS (10)
  1. ARMODAFINIL [Concomitant]
  2. XYREM [Suspect]
     Indication: NARCOLEPSY
     Dosage: 4.5 GM (2.25 GM,2 IN 1 D),ORAL ; 6 GM (3 GM,2 IN 1 D),ORAL ; 6.5 GM (3.25 GM,2 IN 1 D),ORAL
     Route: 048
     Dates: start: 20110101
  3. XYREM [Suspect]
     Indication: SLEEP DISORDER
     Dosage: 4.5 GM (2.25 GM,2 IN 1 D),ORAL ; 6 GM (3 GM,2 IN 1 D),ORAL ; 6.5 GM (3.25 GM,2 IN 1 D),ORAL
     Route: 048
     Dates: start: 20110101
  4. XYREM [Suspect]
     Indication: SOMNOLENCE
     Dosage: 4.5 GM (2.25 GM,2 IN 1 D),ORAL ; 6 GM (3 GM,2 IN 1 D),ORAL ; 6.5 GM (3.25 GM,2 IN 1 D),ORAL
     Route: 048
     Dates: start: 20110101
  5. XYREM [Suspect]
     Indication: NARCOLEPSY
     Dosage: 4.5 GM (2.25 GM,2 IN 1 D),ORAL ; 6 GM (3 GM,2 IN 1 D),ORAL ; 6.5 GM (3.25 GM,2 IN 1 D),ORAL
     Route: 048
     Dates: start: 20110305
  6. XYREM [Suspect]
     Indication: SLEEP DISORDER
     Dosage: 4.5 GM (2.25 GM,2 IN 1 D),ORAL ; 6 GM (3 GM,2 IN 1 D),ORAL ; 6.5 GM (3.25 GM,2 IN 1 D),ORAL
     Route: 048
     Dates: start: 20110305
  7. XYREM [Suspect]
     Indication: SOMNOLENCE
     Dosage: 4.5 GM (2.25 GM,2 IN 1 D),ORAL ; 6 GM (3 GM,2 IN 1 D),ORAL ; 6.5 GM (3.25 GM,2 IN 1 D),ORAL
     Route: 048
     Dates: start: 20110305
  8. XYREM [Suspect]
     Indication: NARCOLEPSY
     Dosage: 4.5 GM (2.25 GM,2 IN 1 D),ORAL ; 6 GM (3 GM,2 IN 1 D),ORAL ; 6.5 GM (3.25 GM,2 IN 1 D),ORAL
     Route: 048
     Dates: start: 20110328, end: 20110101
  9. XYREM [Suspect]
     Indication: SLEEP DISORDER
     Dosage: 4.5 GM (2.25 GM,2 IN 1 D),ORAL ; 6 GM (3 GM,2 IN 1 D),ORAL ; 6.5 GM (3.25 GM,2 IN 1 D),ORAL
     Route: 048
     Dates: start: 20110328, end: 20110101
  10. XYREM [Suspect]
     Indication: SOMNOLENCE
     Dosage: 4.5 GM (2.25 GM,2 IN 1 D),ORAL ; 6 GM (3 GM,2 IN 1 D),ORAL ; 6.5 GM (3.25 GM,2 IN 1 D),ORAL
     Route: 048
     Dates: start: 20110328, end: 20110101

REACTIONS (4)
  - PREGNANCY WITH CONTRACEPTIVE DEVICE [None]
  - ECTOPIC PREGNANCY [None]
  - DRUG EXPOSURE DURING PREGNANCY [None]
  - ABORTION SPONTANEOUS [None]
